FAERS Safety Report 20607681 (Version 1)
Quarter: 2022Q1

REPORT INFORMATION
  Report Type: Spontaneous
  Country: US (occurrence: US)
  Receive Date: 20220317
  Receipt Date: 20220317
  Transmission Date: 20220423
  Serious: No
  Sender: FDA-Public Use
  Company Number: US-ENDO PHARMACEUTICALS INC-2021-010518

PATIENT
  Age: 63 Year
  Sex: Female

DRUGS (1)
  1. XIAFLEX [Suspect]
     Active Substance: COLLAGENASE CLOSTRIDIUM HISTOLYTICUM
     Indication: Dupuytren^s contracture
     Dosage: UNK UNKNOWN, UNKNOWN
     Route: 065
     Dates: start: 202105

REACTIONS (4)
  - Nodule [Recovered/Resolved]
  - Arthralgia [Recovered/Resolved]
  - Contusion [Recovering/Resolving]
  - Axillary pain [Recovered/Resolved]

NARRATIVE: CASE EVENT DATE: 20210501
